FAERS Safety Report 5846734-3 (Version None)
Quarter: 2008Q3

REPORT INFORMATION
  Report Type: 
  Country: None (occurrence: None)
  Receive Date: 20080815
  Receipt Date: 20080808
  Transmission Date: 20090109
  Serious: Yes (Hospitalization)
  Sender: FDA-Public Use
  Company Number: US-AVENTIS-200817568GDDC

PATIENT
  Age: 81 Year
  Sex: Male
  Weight: 97 kg

DRUGS (4)
  1. TAXOTERE [Suspect]
     Indication: PROSTATE CANCER
     Route: 042
     Dates: start: 20080619, end: 20080731
  2. DEXAMETHASONE TAB [Suspect]
     Indication: PROSTATE CANCER
     Dosage: DOSE: 48 MG TOTAL THIS COURSE
     Dates: start: 20080619, end: 20080801
  3. PREDNISONE TAB [Suspect]
     Indication: PROSTATE CANCER
     Dosage: DOSE: 70 MG TOTAL DOSE THIS COURSE
     Route: 048
     Dates: start: 20080619, end: 20080807
  4. CODE UNBROKEN [Suspect]
     Indication: PROSTATE CANCER
     Dosage: DOSE: 70 MG TOTAL DOSE THIS COURSE
     Route: 048
     Dates: start: 20080619, end: 20080807

REACTIONS (2)
  - ASPIRATION [None]
  - SYNCOPE VASOVAGAL [None]
